FAERS Safety Report 18357442 (Version 2)
Quarter: 2020Q4

REPORT INFORMATION
  Report Type: Spontaneous
  Country: ES (occurrence: ES)
  Receive Date: 20201008
  Receipt Date: 20201015
  Transmission Date: 20210114
  Serious: Yes (Hospitalization)
  Sender: FDA-Public Use
  Company Number: ES-TEVA-2020-ES-1835900

PATIENT
  Sex: Male

DRUGS (1)
  1. MYOCET LIPOSOMAL 50 MG POLVO, DISPERSION Y DISOLVENTE PARA CONCENTRADO [Suspect]
     Active Substance: DOXORUBICIN
     Dates: start: 2016, end: 2016

REACTIONS (1)
  - Cardiac failure [Not Recovered/Not Resolved]

NARRATIVE: CASE EVENT DATE: 2016
